FAERS Safety Report 8914723 (Version 4)
Quarter: 2013Q1

REPORT INFORMATION
  Report Type: Spontaneous
  Country: JP (occurrence: JP)
  Receive Date: 20121119
  Receipt Date: 20130205
  Transmission Date: 20140127
  Serious: Yes (Hospitalization)
  Sender: FDA-Public Use
  Company Number: JP-MERCK-1211JPN005689

PATIENT
  Age: 67 Year
  Sex: Female
  Weight: 49 kg

DRUGS (7)
  1. FARESTON [Suspect]
     Indication: BREAST CANCER
     Dosage: 120 MG, QD
     Route: 048
     Dates: start: 20110727, end: 20111228
  2. LYRICA [Suspect]
     Indication: CANCER PAIN
     Dosage: UNK
     Route: 048
     Dates: start: 20111012, end: 20111228
  3. METASTRON [Concomitant]
     Indication: METASTASES TO BONE
     Dosage: UNK
     Route: 042
     Dates: start: 20110811, end: 20110811
  4. LOXOPROFEN [Concomitant]
     Indication: CANCER PAIN
     Dosage: 120 MG, QD
     Route: 048
     Dates: start: 20110408
  5. LENDORMIN D [Concomitant]
     Indication: PROPHYLAXIS
     Dosage: 0.25 MG, QD
     Route: 048
     Dates: start: 20101222
  6. TRAMAL [Concomitant]
     Indication: CANCER PAIN
     Dosage: UNK
     Route: 048
     Dates: start: 20111012, end: 20120113
  7. ZOMETA [Concomitant]
     Indication: METASTASES TO BONE
     Dosage: 4 MG, UNK
     Route: 042
     Dates: start: 20110408

REACTIONS (3)
  - Disseminated intravascular coagulation [Recovering/Resolving]
  - Anaemia [Unknown]
  - Platelet count decreased [Unknown]
